FAERS Safety Report 7232888-3 (Version None)
Quarter: 2011Q1

REPORT INFORMATION
  Report Type: 
  Country: None (occurrence: None)
  Receive Date: 20110119
  Receipt Date: 20110113
  Transmission Date: 20110831
  Serious: Yes (Disabling, Other)
  Sender: FDA-Public Use
  Company Number: US-PFIZER INC-2011009174

PATIENT
  Sex: Male
  Weight: 83.9 kg

DRUGS (9)
  1. METHADONE [Concomitant]
     Indication: SURGERY
  2. KLONOPIN [Concomitant]
     Indication: ANXIETY
  3. METHADONE [Concomitant]
     Indication: INTERVERTEBRAL DISC DEGENERATION
     Dosage: 10 MG, 7 TO 8 X DAY
     Route: 048
  4. KLONOPIN [Concomitant]
     Indication: DEPRESSION
     Dosage: 2 MG, UNK
     Route: 048
  5. SOMA [Concomitant]
     Indication: MUSCLE DISORDER
     Dosage: 350 MG, 2X/DAY
     Route: 048
  6. VIAGRA [Suspect]
     Indication: ERECTILE DYSFUNCTION
     Dosage: UNK
     Route: 048
  7. CIALIS [Concomitant]
     Indication: ERECTILE DYSFUNCTION
     Dosage: UNK
     Route: 048
  8. LEVITRA [Suspect]
     Indication: ERECTILE DYSFUNCTION
     Dosage: UNK
     Route: 048
  9. METHADONE [Concomitant]
     Indication: HIP ARTHROPLASTY

REACTIONS (2)
  - BLINDNESS UNILATERAL [None]
  - VISION BLURRED [None]
